FAERS Safety Report 7833734-7 (Version None)
Quarter: 2011Q4

REPORT INFORMATION
  Report Type: 
  Country: None (occurrence: None)
  Receive Date: 20111024
  Receipt Date: 20110823
  Transmission Date: 20120403
  Serious: Yes (Life-Threatening, Hospitalization)
  Sender: FDA-Public Use
  Company Number: JP-PFIZER INC-2011010579

PATIENT
  Age: 66 Year
  Sex: Male

DRUGS (43)
  1. CYTARABINE [Suspect]
     Indication: ADULT T-CELL LYMPHOMA/LEUKAEMIA
     Dosage: 40 MG, DAILY
     Dates: start: 20101118, end: 20101118
  2. SULFAMETHOXAZOLE [Suspect]
     Dosage: 1 DF, 1X/DAY
     Route: 048
     Dates: start: 20110715
  3. ZOVIRAX [Suspect]
     Dosage: 200 MG, 1X/DAY
     Route: 048
     Dates: start: 20110712, end: 20110719
  4. MEROPENEM [Suspect]
     Dosage: 1 G, 3X/DAY
     Route: 041
     Dates: start: 20110704, end: 20110715
  5. DOXORUBICIN HYDROCHLORIDE [Suspect]
     Dosage: 30 MG/M2, UNK
     Route: 041
     Dates: start: 20101124, end: 20101124
  6. SULFAMETHOXAZOLE [Suspect]
     Indication: ANTIFUNGAL PROPHYLAXIS
     Dosage: 1 DF, 1X/DAY
     Route: 048
     Dates: end: 20110128
  7. ALLOPURINOL [Suspect]
     Dosage: 100 MG, 3X/DAY
     Route: 048
     Dates: start: 20110705, end: 20110719
  8. FENTANYL [Suspect]
     Indication: STOMATITIS
     Dosage: UNK
     Route: 041
     Dates: start: 20110102, end: 20110119
  9. MAGMITT [Suspect]
     Indication: CONSTIPATION
     Dosage: UNK
     Route: 048
     Dates: start: 20110107, end: 20110110
  10. CIPROFLOXACIN HCL [Concomitant]
     Dosage: 200 MG, 3X/DAY
     Route: 048
     Dates: start: 20110715, end: 20110718
  11. PREDNISOLONE [Suspect]
     Indication: ADULT T-CELL LYMPHOMA/LEUKAEMIA
     Dosage: 10 MG, DAILY
     Dates: start: 20101118, end: 20101118
  12. LANSOPRAZOLE [Suspect]
     Indication: GASTROOESOPHAGEAL REFLUX DISEASE
     Dosage: 15 MG, 1X/DAY
     Route: 048
     Dates: end: 20110217
  13. CEFAZOLIN SODIUM [Suspect]
     Indication: PROCTITIS
     Dosage: UNK
     Route: 048
     Dates: start: 20101022, end: 20110217
  14. BARACLUDE [Suspect]
     Indication: HEPATITIS B
     Dosage: 0.5 MG, 1/2DAY
     Route: 048
     Dates: start: 20100629, end: 20110719
  15. ONCOVIN [Suspect]
     Indication: ADULT T-CELL LYMPHOMA/LEUKAEMIA
     Dosage: 1 MG/M2, UNK
     Route: 041
     Dates: start: 20101007, end: 20101222
  16. CYMERIN [Suspect]
     Indication: ADULT T-CELL LYMPHOMA/LEUKAEMIA
     Dosage: 60 MG/M2, UNK
     Route: 041
     Dates: start: 20101014, end: 20101229
  17. ETOPOSIDE [Suspect]
     Indication: ADULT T-CELL LYMPHOMA/LEUKAEMIA
     Dosage: 100 MG/M2, 3X/DAY
     Route: 041
     Dates: start: 20101026, end: 20101208
  18. ALLOPURINOL [Suspect]
     Indication: HYPERURICAEMIA
     Dosage: 100 MG, 1X/DAY
     Route: 048
     Dates: end: 20110120
  19. PANTOSIN [Suspect]
     Indication: CONSTIPATION
     Dosage: UNK
     Route: 048
     Dates: start: 20110107, end: 20110110
  20. DOXORUBICIN HYDROCHLORIDE [Suspect]
     Dosage: 30 MG/M2, UNK
     Route: 041
     Dates: start: 20101229, end: 20101229
  21. PREDNISOLONE [Suspect]
     Indication: ADULT T-CELL LYMPHOMA/LEUKAEMIA
     Dosage: 40 MG/M2, UNK
     Route: 048
     Dates: start: 20101007, end: 20101229
  22. FILDESIN [Suspect]
     Indication: ADULT T-CELL LYMPHOMA/LEUKAEMIA
     Dosage: 2.4 MG/M2, UNK
     Route: 041
     Dates: start: 20101026, end: 20101208
  23. VFEND [Concomitant]
     Dosage: 400 MG, 2X/DAY
     Route: 041
     Dates: start: 20110704, end: 20110718
  24. SLOW-K [Concomitant]
     Dosage: 600 MG, 2X/DAY
     Route: 048
     Dates: start: 20110630, end: 20110724
  25. DOXORUBICIN HYDROCHLORIDE [Suspect]
     Dosage: 30 MG/M2, UNK
     Route: 041
     Dates: start: 20101014, end: 20101014
  26. DOXORUBICIN HYDROCHLORIDE [Suspect]
     Dosage: 40 MG/M2, UNK
     Route: 041
     Dates: start: 20101222, end: 20101222
  27. METHOTREXATE SODIUM [Suspect]
     Indication: ADULT T-CELL LYMPHOMA/LEUKAEMIA
     Dosage: 15 MG, DAILY
     Dates: start: 20101118, end: 20101118
  28. AMLODIPINE [Suspect]
     Indication: HYPERTENSION
     Dosage: 5 MG, 1X/DAY
     Route: 048
     Dates: start: 20101008, end: 20110217
  29. DIFLUCAN [Suspect]
     Indication: ANTIFUNGAL PROPHYLAXIS
     Dosage: 100 MG, 1X/DAY
     Route: 048
     Dates: end: 20110111
  30. KW-0761 [Suspect]
     Indication: ADULT T-CELL LYMPHOMA/LEUKAEMIA
     Dosage: 1 MG/KG, UNK
     Route: 041
     Dates: start: 20101008, end: 20101221
  31. CYCLOPHOSPHAMIDE [Suspect]
     Indication: ADULT T-CELL LYMPHOMA/LEUKAEMIA
     Dosage: 350 MG/M2, UNK
     Route: 041
     Dates: start: 20101007, end: 20101222
  32. LANSOPRAZOLE [Suspect]
     Dosage: 15 MG, 1X/DAY
     Route: 048
     Dates: start: 20110526, end: 20110719
  33. DOXORUBICIN HYDROCHLORIDE [Suspect]
     Dosage: 40 MG/M2, UNK
     Route: 041
     Dates: start: 20101116, end: 20101116
  34. DIFLUCAN [Suspect]
     Dosage: UNK
     Dates: start: 20110119, end: 20110128
  35. VANCOMYCIN [Suspect]
     Dosage: 0.5 G, 2X/DAY
     Route: 041
     Dates: start: 20110107, end: 20110117
  36. LYRICA [Suspect]
     Indication: PAIN
     Dosage: 75 MG, 1X/DAY
     Route: 048
     Dates: start: 20110629, end: 20110719
  37. CARBOPLATIN [Suspect]
     Indication: ADULT T-CELL LYMPHOMA/LEUKAEMIA
     Dosage: 250 MG/M2, UNK
     Route: 041
     Dates: start: 20101026, end: 20101208
  38. ZOVIRAX [Suspect]
     Dosage: UNK
     Dates: start: 20110630, end: 20110708
  39. LIPIDIL [Suspect]
     Indication: HYPERLIPIDAEMIA
     Dosage: 100 DF, 1X/DAY
     Route: 048
     Dates: end: 20110126
  40. MEROPENEM [Suspect]
     Indication: PNEUMONIA
     Dosage: 0.5 G, 2X/DAY
     Route: 041
     Dates: start: 20110107, end: 20110124
  41. DOXORUBICIN HYDROCHLORIDE [Suspect]
     Indication: ADULT T-CELL LYMPHOMA/LEUKAEMIA
     Dosage: 40 MG/M2, UNK
     Route: 041
     Dates: start: 20101007, end: 20101007
  42. ZOVIRAX [Suspect]
     Indication: PROPHYLAXIS
     Dosage: 200 MG, 1X/DAY
     Route: 048
     Dates: end: 20110128
  43. TARGOCID [Concomitant]
     Dosage: 400 MG, 2X/DAY
     Route: 041
     Dates: start: 20110706, end: 20110714

REACTIONS (2)
  - PNEUMONIA [None]
  - INTERSTITIAL LUNG DISEASE [None]
